FAERS Safety Report 9677591 (Version 1)
Quarter: 2013Q4

REPORT INFORMATION
  Report Type: Spontaneous
  Country: US (occurrence: None)
  Receive Date: 20131107
  Receipt Date: 20131107
  Transmission Date: 20140711
  Serious: No
  Sender: FDA-Public Use
  Company Number: None

PATIENT
  Age: 23 Day
  Sex: Male
  Weight: 1.7 kg

DRUGS (1)
  1. ENFAMIL [Suspect]
     Indication: VITAMIN SUPPLEMENTATION
     Route: 048

REACTIONS (2)
  - Intercepted drug dispensing error [None]
  - Product label confusion [None]
